FAERS Safety Report 10379811 (Version 1)
Quarter: 2014Q1

REPORT INFORMATION
  Report Type: Spontaneous
  Country: US (occurrence: None)
  Receive Date: 20140306
  Receipt Date: 20140306
  Transmission Date: 20141002
  Serious: Yes (Other)
  Sender: FDA-Public Use
  Company Number: 163-21880-13033220

PATIENT
  Age: 52 Year
  Sex: Male
  Weight: 103.6 kg

DRUGS (6)
  1. REVLIMID (LENALIDOMIDE) (CAPSULES) [Suspect]
     Indication: PLASMA CELL MYELOMA
     Dosage: 10 MG, 21 IN 21 D, PO
     Route: 048
     Dates: start: 20120718
  2. GABAPENTIN (GABAPENTIN) [Concomitant]
  3. BABY ASA (ACETYLSALICYLIC ACID) [Concomitant]
  4. OMEPRAZOLE (OMEPRAZOLE) [Concomitant]
  5. MGOXIDE (MAGNESIUM OXIDE) [Concomitant]
  6. ACYCLOVIR (ACICLOVIR) (TABLETS) [Concomitant]

REACTIONS (2)
  - Platelet count decreased [None]
  - Diarrhoea [None]
